FAERS Safety Report 9051404 (Version 1)
Quarter: 2013Q1

REPORT INFORMATION
  Report Type: Spontaneous
  Country: US (occurrence: US)
  Receive Date: 20130206
  Receipt Date: 20130206
  Transmission Date: 20140127
  Serious: No
  Sender: FDA-Public Use
  Company Number: US-ALLERGAN-1205560US

PATIENT
  Age: 54 Year
  Sex: Female

DRUGS (2)
  1. RESTASIS [Suspect]
     Indication: DRY EYE
     Dosage: 2 GTT, BID
     Route: 047
     Dates: start: 20120115
  2. MEDICATION FOR DRY EYES [Concomitant]
     Indication: DRY EYE

REACTIONS (3)
  - Eye haemorrhage [Not Recovered/Not Resolved]
  - Scleral haemorrhage [Not Recovered/Not Resolved]
  - Scleral hyperaemia [Not Recovered/Not Resolved]
